FAERS Safety Report 14691584 (Version 2)
Quarter: 2018Q4

REPORT INFORMATION
  Report Type: Spontaneous
  Country: RU (occurrence: RU)
  Receive Date: 20180328
  Receipt Date: 20181003
  Transmission Date: 20190204
  Serious: Yes (Other)
  Sender: FDA-Public Use
  Company Number: RU-ASTRAZENECA-2018SE37854

PATIENT
  Age: 63 Year
  Sex: Female
  Weight: 76 kg

DRUGS (7)
  1. CRESTOR [Concomitant]
     Active Substance: ROSUVASTATIN CALCIUM
     Indication: BLOOD CHOLESTEROL ABNORMAL
  2. BRILINTA [Suspect]
     Active Substance: TICAGRELOR
     Indication: MYOCARDIAL INFARCTION
     Dosage: 60.0MG UNKNOWN
     Route: 048
     Dates: start: 201804
  3. BRILINTA [Suspect]
     Active Substance: TICAGRELOR
     Indication: MYOCARDIAL INFARCTION
     Route: 048
     Dates: start: 201702, end: 20180103
  4. BRTALOC ZOK [Concomitant]
  5. AMLODIPIN [Concomitant]
     Active Substance: AMLODIPINE BESYLATE
  6. VEROSPIRON [Concomitant]
     Active Substance: SPIRONOLACTONE
  7. CANDESARTAN. [Concomitant]
     Active Substance: CANDESARTAN

REACTIONS (7)
  - Gastrointestinal erosion [Recovered/Resolved]
  - Hypertension [Unknown]
  - Product use issue [Recovered/Resolved]
  - Off label use [Recovered/Resolved]
  - Abdominal pain upper [Unknown]
  - Gastrointestinal haemorrhage [Not Recovered/Not Resolved]
  - Dyspnoea exertional [Recovered/Resolved]

NARRATIVE: CASE EVENT DATE: 201702
